FAERS Safety Report 4517770-4 (Version None)
Quarter: 2004Q4

REPORT INFORMATION
  Report Type: 
  Country: None (occurrence: None)
  Receive Date: 20041203
  Receipt Date: 20041126
  Transmission Date: 20050328
  Serious: Yes (Hospitalization)
  Sender: FDA-Public Use
  Company Number: BR-BRISTOL-MYERS SQUIBB COMPANY-12777900

PATIENT
  Age: 41 Year
  Sex: Male

DRUGS (1)
  1. ERBITUX [Suspect]
     Indication: COLORECTAL CANCER
     Dosage: TOTAL DOSE 882 MG IN 441 ML TO BE GIVEN OVER 120 MINUTES
     Route: 042
     Dates: start: 20041126, end: 20041126

REACTIONS (6)
  - DYSPNOEA [None]
  - HYPERAEMIA [None]
  - PRURITUS [None]
  - PYREXIA [None]
  - SHOCK [None]
  - TINNITUS [None]
